FAERS Safety Report 5695573-5 (Version None)
Quarter: 2008Q2

REPORT INFORMATION
  Report Type: 
  Country: None (occurrence: None)
  Receive Date: 20080407
  Receipt Date: 20080306
  Transmission Date: 20081010
  Serious: No
  Sender: FDA-Public Use
  Company Number: US-BAYER-200810838NA

PATIENT
  Sex: Male

DRUGS (1)
  1. AVELOX [Suspect]
     Indication: BRONCHITIS
     Route: 048
     Dates: start: 20080101

REACTIONS (10)
  - BLOOD SODIUM DECREASED [None]
  - EOSINOPHIL COUNT INCREASED [None]
  - MENTAL STATUS CHANGES [None]
  - MYALGIA [None]
  - RASH [None]
  - RASH MACULAR [None]
  - RASH PAPULAR [None]
  - RASH PRURITIC [None]
  - RED BLOOD CELL SEDIMENTATION RATE INCREASED [None]
  - WHITE BLOOD CELL COUNT INCREASED [None]
